FAERS Safety Report 4576474-2 (Version None)
Quarter: 2005Q1

REPORT INFORMATION
  Report Type: 
  Country: None (occurrence: None)
  Receive Date: 20050119
  Receipt Date: 20040405
  Transmission Date: 20050727
  Serious: Yes (Other)
  Sender: FDA-Public Use
  Company Number: A03200401052

PATIENT
  Age: 80 Year
  Sex: Female
  Weight: 79.3795 kg

DRUGS (3)
  1. PLAVIX [Suspect]
     Indication: CEREBROVASCULAR ACCIDENT
     Dosage: 75 MG QD - ORAL
     Route: 048
     Dates: start: 20020201, end: 20040320
  2. NIFEDIPINE [Concomitant]
  3. IRBESARTAN [Concomitant]

REACTIONS (3)
  - BLOOD PRESSURE INCREASED [None]
  - CONTUSION [None]
  - EPISTAXIS [None]
